FAERS Safety Report 18017198 (Version 1)
Quarter: 2020Q3

REPORT INFORMATION
  Report Type: Report from Study
  Country: DO (occurrence: DO)
  Receive Date: 20200713
  Receipt Date: 20200713
  Transmission Date: 20201103
  Serious: Yes (Other)
  Sender: FDA-Public Use
  Company Number: PHHY2018DO124140

PATIENT
  Age: 70 Year
  Sex: Male

DRUGS (3)
  1. SCAPHO [Suspect]
     Active Substance: SECUKINUMAB
     Dosage: UNK
     Route: 065
     Dates: start: 20180928
  2. METHOTREXATE. [Suspect]
     Active Substance: METHOTREXATE
     Indication: PRODUCT USED FOR UNKNOWN INDICATION
     Dosage: UNK (4 TABLETS ON SATURDAYS)
     Route: 065
  3. SCAPHO [Suspect]
     Active Substance: SECUKINUMAB
     Indication: PSORIATIC ARTHROPATHY
     Dosage: 150 MG, QMO
     Route: 058
     Dates: start: 20170830

REACTIONS (9)
  - Joint effusion [Unknown]
  - Injury [Unknown]
  - Pain in extremity [Unknown]
  - Lower limb fracture [Unknown]
  - Arthralgia [Recovering/Resolving]
  - Fall [Unknown]
  - Joint swelling [Unknown]
  - Limb discomfort [Unknown]
  - Arthritis [Unknown]

NARRATIVE: CASE EVENT DATE: 20200708
